FAERS Safety Report 17235026 (Version 2)
Quarter: 2021Q4

REPORT INFORMATION
  Report Type: Spontaneous
  Country: US (occurrence: US)
  Receive Date: 20200106
  Receipt Date: 20211129
  Transmission Date: 20220303
  Serious: No
  Sender: FDA-Public Use
  Company Number: US-UCBSA-2018048659

PATIENT
  Age: 78 Year
  Sex: Male

DRUGS (4)
  1. LACOSAMIDE [Suspect]
     Active Substance: LACOSAMIDE
     Indication: Status epilepticus
     Dosage: UNKNOWN DOSE, MAINTENANCE
  2. LACOSAMIDE [Suspect]
     Active Substance: LACOSAMIDE
     Indication: Off label use
     Dosage: 100 MG DAILY WITH A 150-MG SUPPL DOSE
  3. LEVETIRACETAM [Suspect]
     Active Substance: LEVETIRACETAM
     Indication: Status epilepticus
     Dosage: UNKNOWN DOSE
  4. LEVETIRACETAM [Suspect]
     Active Substance: LEVETIRACETAM
     Indication: Off label use

REACTIONS (1)
  - No adverse event [Unknown]
